FAERS Safety Report 6483599-3 (Version None)
Quarter: 2009Q4

REPORT INFORMATION
  Report Type: 
  Country: None (occurrence: None)
  Receive Date: 20091209
  Receipt Date: 20091205
  Transmission Date: 20100525
  Serious: Yes (Death)
  Sender: FDA-Public Use
  Company Number: PHEH2009US17215

PATIENT
  Sex: Male

DRUGS (2)
  1. EXJADE [Suspect]
     Indication: LYMPHATIC DISORDER
     Dosage: 1500 MG, QD
     Route: 048
  2. EXJADE [Suspect]
     Indication: BLOOD DISORDER

REACTIONS (2)
  - CEREBROVASCULAR ACCIDENT [None]
  - INFECTION [None]
